FAERS Safety Report 10415058 (Version 1)
Quarter: 2014Q2

REPORT INFORMATION
  Report Type: Spontaneous
  Country: US (occurrence: None)
  Receive Date: 20140604
  Receipt Date: 20140604
  Transmission Date: 20141212
  Serious: No
  Sender: FDA-Public Use
  Company Number: 163-POMAL-14031401

PATIENT
  Age: 68 Year
  Sex: Female
  Weight: 48.99 kg

DRUGS (8)
  1. POMALYST (POMALIDOMIDE) (2 MILLIGRAM, CAPSULES) [Suspect]
     Indication: PLASMA CELL MYELOMA
     Route: 048
     Dates: start: 201304, end: 2013
  2. ASA (ACETYLSALICYLIC ACID) [Concomitant]
  3. CALCIUM [Concomitant]
  4. REGLAN (METOCLOPRAMIDE) [Concomitant]
  5. ZOFRAN (ONDANSETRON HYDROCHLORIDE) [Concomitant]
  6. COMPAZINE (PROCHLORPERAZINE EDISYLATE) [Concomitant]
  7. PROMETHAZINE WITH CODEINE (PROMETHAZINE W/ CODEINE ^PHARM BASIC^) [Concomitant]
  8. TEMAZEPAM [Concomitant]

REACTIONS (2)
  - Abdominal pain upper [None]
  - Diarrhoea [None]
